FAERS Safety Report 4371080-7 (Version None)
Quarter: 2004Q2

REPORT INFORMATION
  Report Type: 
  Country: None (occurrence: None)
  Receive Date: 20040601
  Receipt Date: 20040512
  Transmission Date: 20050107
  Serious: Yes (Hospitalization)
  Sender: FDA-Public Use
  Company Number: ETX-US-04-00001

PATIENT
  Age: 45 Year
  Sex: Female

DRUGS (6)
  1. ENTEX LA (PHENYLEPHRINE/GUAIFENESIN) EXTENDED-RELEASE 30/600 (TABLETS) [Suspect]
     Dosage: 30MG/600 MG PO
     Route: 048
     Dates: start: 20020201, end: 20020101
  2. BIAXIN [Concomitant]
  3. AZMACORT (TRIAMCINOLONE) [Concomitant]
  4. BIDEX (OTC GUAINEFESIN) [Concomitant]
  5. ZESTRIL [Concomitant]
  6. ALBUTEROL [Concomitant]

REACTIONS (12)
  - ASTHENIA [None]
  - BLOOD POTASSIUM DECREASED [None]
  - CORONARY ARTERY DISEASE [None]
  - CORONARY ARTERY STENOSIS [None]
  - DRUG INEFFECTIVE [None]
  - DYSPNOEA [None]
  - HYPERHIDROSIS [None]
  - MYOCARDIAL INFARCTION [None]
  - PAIN [None]
  - PALLOR [None]
  - URINARY TRACT INFECTION [None]
  - VOMITING [None]
